FAERS Safety Report 14700490 (Version 1)
Quarter: 2018Q1

REPORT INFORMATION
  Report Type: Report from Study
  Country: DK (occurrence: DK)
  Receive Date: 20180330
  Receipt Date: 20180330
  Transmission Date: 20180509
  Serious: Yes (Death)
  Sender: FDA-Public Use
  Company Number: DK-ASTRAZENECA-2018SE38356

PATIENT
  Age: 20 Year
  Sex: Male

DRUGS (9)
  1. CODEINE [Concomitant]
     Active Substance: CODEINE
  2. OXYCODONE [Concomitant]
     Active Substance: OXYCODONE
  3. OXAZEPAM. [Suspect]
     Active Substance: OXAZEPAM
     Dosage: UNK
     Route: 065
  4. AMFETAMINE [Concomitant]
     Active Substance: AMPHETAMINE
  5. METHADONE [Suspect]
     Active Substance: METHADONE HYDROCHLORIDE
     Dosage: UNK
     Route: 065
  6. PREGABALIN. [Suspect]
     Active Substance: PREGABALIN
     Dosage: UNK
     Route: 065
  7. QUETIAPINE FUMARATE. [Suspect]
     Active Substance: QUETIAPINE FUMARATE
     Indication: DEPRESSION
     Dosage: 45-120 MG/DAILY
     Route: 048
  8. BACLOFEN. [Suspect]
     Active Substance: BACLOFEN
     Dosage: UNK
     Route: 065
  9. COCAINE [Concomitant]
     Active Substance: COCAINE

REACTIONS (1)
  - Toxicity to various agents [Fatal]
